FAERS Safety Report 21970743 (Version 1)
Quarter: 2023Q1

REPORT INFORMATION
  Report Type: Spontaneous
  Country: DE (occurrence: DE)
  Receive Date: 20230209
  Receipt Date: 20230209
  Transmission Date: 20230418
  Serious: Yes (Death)
  Sender: FDA-Public Use
  Company Number: DE-JNJFOC-20230155444

PATIENT
  Age: 41 Year
  Sex: Male

DRUGS (3)
  1. CYCLOPHOSPHAMIDE [Suspect]
     Active Substance: CYCLOPHOSPHAMIDE
     Indication: Amyloidosis
     Dosage: UNK
     Route: 065
     Dates: start: 20211112
  2. DEXAMETHASONE [Suspect]
     Active Substance: DEXAMETHASONE
     Indication: Amyloidosis
     Dosage: UNK
     Route: 065
     Dates: start: 20211112
  3. VELCADE [Suspect]
     Active Substance: BORTEZOMIB
     Indication: Amyloidosis
     Dosage: UNK
     Route: 065
     Dates: start: 20211112

REACTIONS (2)
  - Sudden cardiac death [Fatal]
  - Off label use [Unknown]

NARRATIVE: CASE EVENT DATE: 20211112
